FAERS Safety Report 5555213-2 (Version None)
Quarter: 2007Q4

REPORT INFORMATION
  Report Type: 
  Country: None (occurrence: None)
  Receive Date: 20071213
  Receipt Date: 20071204
  Transmission Date: 20080405
  Serious: Yes (Hospitalization)
  Sender: FDA-Public Use
  Company Number: US-KINGPHARMUSA00001-K200701566

PATIENT

DRUGS (7)
  1. LEVOXYL [Suspect]
     Indication: THYROID DISORDER
     Dosage: 25 MCG, QD
     Dates: end: 20070601
  2. LEVOXYL [Suspect]
     Dosage: 25 MCG, QD
     Dates: start: 20071117, end: 20071122
  3. LEVOXYL [Suspect]
     Dosage: 12.5 MCG, QD
     Dates: start: 20071101, end: 20071201
  4. LEVOXYL [Suspect]
     Dosage: 25 MCG, QD
     Dates: start: 20071201
  5. PREMARIN [Concomitant]
     Indication: HORMONE THERAPY
     Dates: start: 20061101, end: 20070601
  6. DIABETES MEDICATION (NOS) [Concomitant]
     Indication: DIABETES MELLITUS
     Dates: end: 20070601
  7. ZYRTEC [Concomitant]
     Indication: HYPERSENSITIVITY

REACTIONS (15)
  - ADVERSE DRUG REACTION [None]
  - ASTHENIA [None]
  - BALANCE DISORDER [None]
  - DYSPNOEA [None]
  - FEELING ABNORMAL [None]
  - HEADACHE [None]
  - HYPOAESTHESIA [None]
  - MENTAL IMPAIRMENT [None]
  - MUSCULOSKELETAL DISCOMFORT [None]
  - PARALYSIS [None]
  - SOMNOLENCE [None]
  - SPEECH DISORDER [None]
  - THYROID FUNCTION TEST ABNORMAL [None]
  - VITAL CAPACITY ABNORMAL [None]
  - VITAL FUNCTIONS ABNORMAL [None]
